FAERS Safety Report 19603022 (Version 1)
Quarter: 2021Q3

REPORT INFORMATION
  Report Type: Spontaneous
  Country: US (occurrence: US)
  Receive Date: 20210723
  Receipt Date: 20210723
  Transmission Date: 20211014
  Serious: Yes (Other)
  Sender: FDA-Public Use
  Company Number: US-HIKMA PHARMACEUTICALS USA INC.-US-H14001-21-03331

PATIENT
  Sex: Female
  Weight: 54.43 kg

DRUGS (3)
  1. PREDNISONE. [Suspect]
     Active Substance: PREDNISONE
     Indication: PRODUCT USED FOR UNKNOWN INDICATION
     Route: 065
  2. XELJANZ [Suspect]
     Active Substance: TOFACITINIB CITRATE
     Indication: RHEUMATOID ARTHRITIS
     Route: 048
  3. PREDNISONE. [Suspect]
     Active Substance: PREDNISONE
     Route: 065

REACTIONS (14)
  - Malaise [Unknown]
  - Adrenal suppression [Unknown]
  - Hypotension [Unknown]
  - White blood cell count increased [Unknown]
  - Poisoning [Unknown]
  - Rheumatoid arthritis [Unknown]
  - Red blood cell count increased [Unknown]
  - Illness [Unknown]
  - Hot flush [Unknown]
  - Body height decreased [Unknown]
  - Reticulocyte count increased [Unknown]
  - Bedridden [Unknown]
  - Red cell distribution width increased [Unknown]
  - Feeling abnormal [Unknown]
